FAERS Safety Report 4312053-X (Version None)
Quarter: 2004Q1

REPORT INFORMATION
  Report Type: 
  Country: None (occurrence: None)
  Receive Date: 20040303
  Receipt Date: 20040219
  Transmission Date: 20041129
  Serious: Yes (Other)
  Sender: FDA-Public Use
  Company Number: 2004200334CA

PATIENT
  Age: 44 Year
  Sex: Female

DRUGS (3)
  1. DEPO-MEDROL [Suspect]
     Indication: ARTHRALGIA
     Dosage: 10 MG, SINGLE, INTRA-ARTICULAR
     Route: 014
     Dates: start: 20040217
  2. ROFECOXIB [Concomitant]
  3. VITAMIN B-12 [Concomitant]

REACTIONS (4)
  - BURNING SENSATION [None]
  - INJECTION SITE BURNING [None]
  - LOSS OF CONSCIOUSNESS [None]
  - RESPIRATORY ARREST [None]
